FAERS Safety Report 12330666 (Version 1)
Quarter: 2016Q2

REPORT INFORMATION
  Report Type: Spontaneous
  Country: US (occurrence: None)
  Receive Date: 20160503
  Receipt Date: 20160503
  Transmission Date: 20160815
  Serious: Yes (Hospitalization)
  Sender: FDA-Public Use
  Company Number: None

PATIENT
  Age: 52 Year
  Sex: Male
  Weight: 82.8 kg

DRUGS (1)
  1. APIXABAN, 5 MG [Suspect]
     Active Substance: APIXABAN
     Indication: PORTAL VEIN THROMBOSIS
     Route: 048

REACTIONS (4)
  - Gastrointestinal haemorrhage [None]
  - Haematocrit decreased [None]
  - Haemoglobin decreased [None]
  - Melaena [None]

NARRATIVE: CASE EVENT DATE: 20160220
